FAERS Safety Report 13081153 (Version 1)
Quarter: 2017Q1

REPORT INFORMATION
  Report Type: Other
  Country: US (occurrence: US)
  Receive Date: 20170103
  Receipt Date: 20170103
  Transmission Date: 20170428
  Serious: Yes (Other)
  Sender: FDA-Public Use
  Company Number: US-ACORDA-ACO_132121_2016

PATIENT
  Sex: Female

DRUGS (1)
  1. AMPYRA [Suspect]
     Active Substance: DALFAMPRIDINE
     Indication: PRODUCT USED FOR UNKNOWN INDICATION
     Dosage: 10 MG, BID
     Route: 048
     Dates: start: 20160719, end: 20161222

REACTIONS (7)
  - Blindness [Unknown]
  - Vomiting [Unknown]
  - Lymphoedema [Unknown]
  - Spinal pain [Unknown]
  - Muscle spasms [Unknown]
  - Illusion [Unknown]
  - Hyperchlorhydria [Unknown]
